FAERS Safety Report 17349116 (Version 1)
Quarter: 2020Q1

REPORT INFORMATION
  Report Type: Spontaneous
  Country: US (occurrence: US)
  Receive Date: 20200130
  Receipt Date: 20200130
  Transmission Date: 20200409
  Serious: No
  Sender: FDA-Public Use
  Company Number: US-009507513-2001USA008631

PATIENT
  Sex: Female
  Weight: 42.64 kg

DRUGS (1)
  1. NEXPLANON [Suspect]
     Active Substance: ETONOGESTREL
     Dosage: 1 ROD
     Dates: start: 20161130

REACTIONS (3)
  - Device deployment issue [Unknown]
  - No adverse event [Unknown]
  - Complication of device removal [Unknown]
